FAERS Safety Report 9441018 (Version 2)
Quarter: 2013Q3

REPORT INFORMATION
  Report Type: Spontaneous
  Country: US (occurrence: US)
  Receive Date: 20130805
  Receipt Date: 20130822
  Transmission Date: 20140515
  Serious: No
  Sender: FDA-Public Use
  Company Number: US-PFIZER INC-2013223885

PATIENT
  Age: 23 Year
  Sex: Male

DRUGS (3)
  1. CLINDAMYCIN HCL [Suspect]
     Indication: STAPHYLOCOCCAL INFECTION
     Dosage: 300 MG, 3X/DAY
     Route: 048
     Dates: start: 20130327, end: 201304
  2. CLINDAMYCIN HCL [Suspect]
     Indication: HIDRADENITIS
  3. CLINDAMYCIN HCL [Suspect]
     Indication: SINUS DISORDER

REACTIONS (2)
  - Rash generalised [Recovered/Resolved]
  - Drug hypersensitivity [Unknown]
